FAERS Safety Report 8784819 (Version 2)
Quarter: 2012Q4

REPORT INFORMATION
  Report Type: 
  Country: US (occurrence: US)
  Receive Date: 20120914
  Receipt Date: 20121018
  Transmission Date: 20130627
  Serious: Yes (Other)
  Sender: FDA-Public Use
  Company Number: US-BAYER-2012-093500

PATIENT
  Age: 48 Year
  Sex: Female
  Weight: 87.53 kg

DRUGS (1)
  1. MIRENA [Suspect]
     Indication: MENORRHAGIA
     Dosage: 20 mcg/24hr, CONT
     Route: 015
     Dates: start: 20120702, end: 20120811

REACTIONS (2)
  - Vaginal haemorrhage [None]
  - Device expulsion [None]
